FAERS Safety Report 20103310 (Version 3)
Quarter: 2022Q1

REPORT INFORMATION
  Report Type: Spontaneous
  Country: IL (occurrence: IL)
  Receive Date: 20211123
  Receipt Date: 20220119
  Transmission Date: 20220423
  Serious: No
  Sender: FDA-Public Use
  Company Number: IL-UCBSA-2021053709

PATIENT
  Age: 38 Year
  Sex: Female

DRUGS (2)
  1. CIMZIA [Suspect]
     Active Substance: CERTOLIZUMAB PEGOL
     Indication: Crohn^s disease
     Dosage: 400 MILLIGRAM, EV 4 WEEKS
     Dates: start: 202108
  2. METAMIZOLE [Concomitant]
     Active Substance: METAMIZOLE
     Indication: Fistula
     Dosage: UNK

REACTIONS (5)
  - Hepatomegaly [Recovering/Resolving]
  - Hepatic enzyme increased [Not Recovered/Not Resolved]
  - Therapeutic product effect incomplete [Unknown]
  - Maternal exposure during pregnancy [Unknown]
  - Drug ineffective [Unknown]

NARRATIVE: CASE EVENT DATE: 20210101
